FAERS Safety Report 10040192 (Version 1)
Quarter: 2014Q1

REPORT INFORMATION
  Report Type: Report from Study
  Country: US (occurrence: US)
  Receive Date: 20140327
  Receipt Date: 20140327
  Transmission Date: 20141002
  Serious: Yes (Hospitalization)
  Sender: FDA-Public Use
  Company Number: PHHY2014US036085

PATIENT
  Sex: Male
  Weight: 87.63 kg

DRUGS (31)
  1. XOLAIR [Suspect]
     Indication: ASTHMA
     Dosage: 300 MG, BIW
     Route: 058
  2. XOLAIR [Suspect]
     Dosage: UNK
     Route: 058
  3. XOLAIR [Suspect]
     Dosage: 300 MG, BIW
     Route: 058
  4. CLONAZEPAM [Suspect]
     Dosage: 0.5 MG, BID
     Route: 048
  5. NAPROXEN [Suspect]
     Dosage: 250 MG, BID
     Route: 048
  6. PRINIVIL [Concomitant]
     Dosage: 1 DF, QD
     Route: 048
  7. ZESTRIL [Concomitant]
     Dosage: 1 DF, QD
     Route: 048
  8. KEFLEX [Concomitant]
     Dosage: 1 DF, IN 8 HR
     Route: 048
  9. COLACE [Concomitant]
     Dosage: 2 DF, QD
     Route: 048
  10. GLYCOLAX [Concomitant]
     Dosage: 1 DF, QD
     Route: 048
  11. MIRALAX [Concomitant]
     Dosage: 1 DF, QD
     Route: 048
  12. MSIR [Concomitant]
     Dosage: 2 DF, QD
  13. VICODIN [Concomitant]
     Dosage: UNK UKN, UNK
  14. NIASPAN [Concomitant]
     Dosage: 500 MG, QD
  15. LISINOPRIL [Concomitant]
     Dosage: 5 MG, QD
  16. CEPHALEXIN [Concomitant]
     Dosage: 500 MG, (EVERY 8 HOURS)
     Route: 048
  17. PROAIR [Concomitant]
     Dosage: 2 DF, (2 PUFFS EVERY 4 HOURS AS NEEDED)
     Route: 055
  18. DALIRESP [Concomitant]
     Dosage: 50 UG, UNK
  19. BECLOMETHASONE [Concomitant]
     Dosage: 40 UG, UNK
  20. ADVAIR DISKUS [Concomitant]
     Dosage: UNK (250-50)
  21. DICLOFENAC [Concomitant]
     Dosage: UNK
  22. OMEPRAZOLE [Concomitant]
     Dosage: UNK UKN, UNK
     Route: 048
  23. DOCUSATE SODIUM [Concomitant]
     Dosage: UNK UKN, UNK
  24. ASPIRIN [Concomitant]
     Dosage: UNK UKN, UNK
  25. POLYETHYLENE GLYCOL [Concomitant]
     Dosage: UNK UKN, UNK
  26. MORPHINE [Concomitant]
     Dosage: 30 MG, UNK
  27. CYANOCOBALAMIN [Concomitant]
     Dosage: 1000 UG, UNK
  28. GABAPENTIN [Concomitant]
     Dosage: 800 MG, UNK
  29. FENOFIBRATE [Concomitant]
     Dosage: 160 MG, UNK
  30. DULOXETINE [Concomitant]
     Dosage: 30 MG, UNK
  31. TRAMADOL HCL [Concomitant]
     Dosage: UNK UKN, UNK

REACTIONS (1)
  - Dehydration [Unknown]
